FAERS Safety Report 4808393-8 (Version None)
Quarter: 2005Q4

REPORT INFORMATION
  Report Type: 
  Country: None (occurrence: None)
  Receive Date: 20051021
  Receipt Date: 20040127
  Transmission Date: 20060501
  Serious: No
  Sender: FDA-Public Use
  Company Number: JP_040202575

PATIENT
  Age: 55 Year
  Sex: Female

DRUGS (3)
  1. ZYPREXA [Suspect]
     Indication: SCHIZOPHRENIA
     Dosage: 10 MG/DAY
     Dates: start: 20030317, end: 20040115
  2. LULLAN (PEROSPIRONE HYDROCHLORIDE) [Concomitant]
  3. ROHIPNOL (FLUNITRAZEPAM) [Concomitant]

REACTIONS (1)
  - WHITE BLOOD CELL COUNT DECREASED [None]
